FAERS Safety Report 23944967 (Version 1)
Quarter: 2024Q2

REPORT INFORMATION
  Report Type: Spontaneous
  Country: PT (occurrence: PT)
  Receive Date: 20240606
  Receipt Date: 20240606
  Transmission Date: 20240716
  Serious: Yes (Death, Hospitalization)
  Sender: FDA-Public Use
  Company Number: PT-STRIDES ARCOLAB LIMITED-2024SP006446

PATIENT
  Age: 86 Year
  Sex: Female

DRUGS (1)
  1. ZOLPIDEM [Suspect]
     Active Substance: ZOLPIDEM TARTRATE
     Indication: Product used for unknown indication
     Dosage: UNK
     Route: 065

REACTIONS (5)
  - Hepatic failure [Fatal]
  - Autoimmune hepatitis [Fatal]
  - Multiple organ dysfunction syndrome [Fatal]
  - Hepatitis acute [Unknown]
  - Hepatic encephalopathy [Not Recovered/Not Resolved]
